FAERS Safety Report 7154196-1 (Version None)
Quarter: 2010Q4

REPORT INFORMATION
  Report Type: 
  Country: None (occurrence: None)
  Receive Date: 20101213
  Receipt Date: 20101202
  Transmission Date: 20110411
  Serious: Yes (Other)
  Sender: FDA-Public Use
  Company Number: US-JNJCH-2010027759

PATIENT
  Age: 23 Year
  Sex: Female
  Weight: 98.9 kg

DRUGS (2)
  1. NEOSPORIN LT LIP TREATMENT [Suspect]
     Indication: LIP DISORDER
     Dosage: TEXT:^PEA-SIZED^ AMOUNT ONCE
     Route: 061
     Dates: start: 20101130, end: 20101130
  2. PRENATAL VITAMINS [Concomitant]
     Indication: SUPPLEMENTATION THERAPY
     Dosage: TEXT:ONE TAB PER DAY
     Route: 048

REACTIONS (4)
  - CONDITION AGGRAVATED [None]
  - DRUG EXPOSURE DURING PREGNANCY [None]
  - EXPIRED DRUG ADMINISTERED [None]
  - HYPERSENSITIVITY [None]
